FAERS Safety Report 18452290 (Version 1)
Quarter: 2020Q4

REPORT INFORMATION
  Report Type: Spontaneous
  Country: US (occurrence: US)
  Receive Date: 20201102
  Receipt Date: 20201102
  Transmission Date: 20210114
  Serious: No
  Sender: FDA-Public Use
  Company Number: US-ACCORD-156440

PATIENT
  Sex: Female

DRUGS (16)
  1. ESCITALOPRAM [Suspect]
     Active Substance: ESCITALOPRAM OXALATE
     Indication: DEPRESSION
     Dosage: TAKES 1/2 TABLET FOR 2 WEEKS THEN INCREASE TO FULL 10 MG
     Dates: start: 20190925
  2. DIGOXIN. [Concomitant]
     Active Substance: DIGOXIN
  3. EZETIMIBE. [Concomitant]
     Active Substance: EZETIMIBE
  4. CRANBERRY. [Concomitant]
     Active Substance: CRANBERRY
  5. MONTELUKAST [Concomitant]
     Active Substance: MONTELUKAST SODIUM
  6. AMLODIPINE [Concomitant]
     Active Substance: AMLODIPINE BESYLATE
  7. RESTASIS [Concomitant]
     Active Substance: CYCLOSPORINE
  8. ALIGN PROBIOTIC [Concomitant]
  9. LEVOCETIRIZINE/LEVOCETIRIZINE DIHYDROCHLORIDE [Concomitant]
     Active Substance: LEVOCETIRIZINE DIHYDROCHLORIDE
  10. ASMANEX [Concomitant]
     Active Substance: MOMETASONE FUROATE
  11. SYNTHROID [Concomitant]
     Active Substance: LEVOTHYROXINE SODIUM
  12. ACETYLSALICYLIC ACID [Concomitant]
     Active Substance: ASPIRIN
  13. ATORVASTATIN [Concomitant]
     Active Substance: ATORVASTATIN
  14. NADOLOL. [Concomitant]
     Active Substance: NADOLOL
  15. BELSOMRA [Concomitant]
     Active Substance: SUVOREXANT
  16. LOTEMAX [Concomitant]
     Active Substance: LOTEPREDNOL ETABONATE

REACTIONS (3)
  - Somnolence [Not Recovered/Not Resolved]
  - Feeling abnormal [Not Recovered/Not Resolved]
  - Heart rate increased [Not Recovered/Not Resolved]
